FAERS Safety Report 9411454 (Version 1)
Quarter: 2013Q3

REPORT INFORMATION
  Report Type: Spontaneous
  Country: CA (occurrence: CA)
  Receive Date: 20130722
  Receipt Date: 20130722
  Transmission Date: 20140515
  Serious: Yes (Hospitalization)
  Sender: FDA-Public Use
  Company Number: CA-SP-2013-07811

PATIENT
  Age: 26 Year
  Sex: Female

DRUGS (1)
  1. TUBERSOL (5) [Suspect]
     Indication: TUBERCULIN TEST
     Dosage: 1.0 DOSAGE FORMS
     Route: 023

REACTIONS (6)
  - Anaphylactic reaction [Recovered/Resolved]
  - Cold sweat [Recovered/Resolved]
  - Feeling cold [Recovered/Resolved]
  - Injection site erythema [Recovered/Resolved]
  - Palpitations [Recovered/Resolved]
  - Urticaria [Recovered/Resolved]
